FAERS Safety Report 8166054-4 (Version None)
Quarter: 2012Q1

REPORT INFORMATION
  Report Type: 
  Country: None (occurrence: None)
  Receive Date: 20120227
  Receipt Date: 20110324
  Transmission Date: 20120608
  Serious: No
  Sender: FDA-Public Use
  Company Number: US-MYLANLABS-2011S1004194

PATIENT
  Age: 23 Year
  Sex: Female
  Weight: 56 kg

DRUGS (6)
  1. AMNESTEEM [Suspect]
     Route: 048
     Dates: start: 20110101, end: 20110217
  2. AMNESTEEM [Suspect]
     Indication: ACNE
     Route: 048
     Dates: start: 20101123, end: 20110101
  3. PROTONIX [Concomitant]
  4. ORTHO TRI-CYCLEN [Concomitant]
     Indication: CONTRACEPTION
  5. AMNESTEEM [Suspect]
     Route: 048
     Dates: start: 20110101, end: 20110217
  6. BYSTOLIC [Concomitant]
     Indication: BLOOD PRESSURE INCREASED

REACTIONS (2)
  - DEPRESSED MOOD [None]
  - MOOD SWINGS [None]
